FAERS Safety Report 4530780-6 (Version None)
Quarter: 2004Q4

REPORT INFORMATION
  Report Type: 
  Country: None (occurrence: None)
  Receive Date: 20041129
  Receipt Date: 20040903
  Transmission Date: 20050328
  Serious: Yes (Hospitalization, Other)
  Sender: FDA-Public Use
  Company Number: US_010770104

PATIENT
  Age: 44 Year
  Sex: Female
  Weight: 136 kg

DRUGS (17)
  1. HUMULIN N [Suspect]
     Indication: DIABETES MELLITUS
     Dosage: 80 U/DAY
     Dates: start: 19840101
  2. PHENTERMINE [Concomitant]
  3. PONDIMIN [Concomitant]
  4. ZYPREXA [Suspect]
  5. LEVOTHYROXINE SODIUM [Concomitant]
  6. THYROID TAB [Concomitant]
  7. GLUCOPHAGE [Concomitant]
  8. AVANDIA [Concomitant]
  9. MULTIVITAMIN [Concomitant]
  10. MAGNESIUM [Concomitant]
  11. CHROMIUM [Concomitant]
  12. REDUX [Concomitant]
  13. WEIGHT LOSS [Concomitant]
  14. NOVOLIN (INSULIN HUMAN INJECTION, ISOPHANE) [Concomitant]
  15. SEROQUEL [Concomitant]
  16. PROZAC [Suspect]
     Indication: DEPRESSION
     Dosage: 20 MG
     Route: 048
  17. TRYPTOPHAN, L- [Concomitant]

REACTIONS (8)
  - ANXIETY [None]
  - HALLUCINATION [None]
  - HOSPITALISATION [None]
  - LOWER LIMB FRACTURE [None]
  - NAUSEA [None]
  - PALPITATIONS [None]
  - SKIN ULCER [None]
  - WEIGHT DECREASED [None]
